APPROVED DRUG PRODUCT: ZOLEDRONIC
Active Ingredient: ZOLEDRONIC ACID
Strength: EQ 4MG BASE/100ML
Dosage Form/Route: INJECTABLE;INTRAVENOUS
Application: A205749 | Product #001 | TE Code: AP
Applicant: GLAND PHARMA LTD
Approved: Jun 29, 2018 | RLD: No | RS: Yes | Type: RX